FAERS Safety Report 19120610 (Version 1)
Quarter: 2021Q2

REPORT INFORMATION
  Report Type: Spontaneous
  Country: US (occurrence: US)
  Receive Date: 20210410
  Receipt Date: 20210410
  Transmission Date: 20210717
  Serious: Yes (Hospitalization)
  Sender: FDA-Public Use
  Company Number: None

PATIENT
  Age: 2 Year
  Sex: Male
  Weight: 13.4 kg

DRUGS (4)
  1. CARBOPLATIN 520 MG [Suspect]
     Active Substance: CARBOPLATIN
     Dates: end: 20210220
  2. MELPHALAN 105 MG [Suspect]
     Active Substance: MELPHALAN
     Dates: end: 20210219
  3. G?CSF (FILGRASTIM, AMGEN) 910 MCG [Suspect]
     Active Substance: FILGRASTIM
     Dates: end: 20210309
  4. ETOPOSIDE (VP?16) 464 MG [Suspect]
     Active Substance: ETOPOSIDE
     Dates: end: 20210220

REACTIONS (7)
  - Fluid overload [None]
  - Bacteraemia [None]
  - Respiratory failure [None]
  - Pulseless electrical activity [None]
  - Achromobacter infection [None]
  - Lung infiltration [None]
  - Cardio-respiratory arrest [None]

NARRATIVE: CASE EVENT DATE: 20210311
